FAERS Safety Report 18897951 (Version 1)
Quarter: 2021Q1

REPORT INFORMATION
  Report Type: Spontaneous
  Country: US (occurrence: US)
  Receive Date: 20210216
  Receipt Date: 20210216
  Transmission Date: 20210420
  Serious: No
  Sender: FDA-Public Use
  Company Number: US-APOTEX-2020AP011059

PATIENT
  Sex: Female

DRUGS (2)
  1. ONDANSETRON INJECTION USP [Suspect]
     Active Substance: ONDANSETRON
     Indication: HAEMATEMESIS
  2. ONDANSETRON INJECTION USP [Suspect]
     Active Substance: ONDANSETRON
     Indication: NAUSEA
     Dosage: 6 DF, QD (4MG/2ML , 8 MG DILUTED EVERY 6 HOURS)
     Route: 040

REACTIONS (2)
  - Incorrect dose administered [Unknown]
  - No adverse event [Unknown]
